FAERS Safety Report 6872055-6 (Version None)
Quarter: 2010Q3

REPORT INFORMATION
  Report Type: 
  Country: None (occurrence: None)
  Receive Date: 20100723
  Receipt Date: 20100716
  Transmission Date: 20110219
  Serious: Yes (Disabling)
  Sender: FDA-Public Use
  Company Number: PHHO2010IT03844

PATIENT
  Sex: Male
  Weight: 69 kg

DRUGS (3)
  1. CERTICAN [Suspect]
     Indication: RENAL TRANSPLANT
     Dosage: 1 MG, BID
     Route: 048
     Dates: start: 20091213
  2. NEORAL [Suspect]
     Indication: RENAL TRANSPLANT
     Dosage: 70 MG, BID
     Dates: start: 20091213
  3. DELTACORTENE [Suspect]
     Indication: RENAL TRANSPLANT
     Dosage: 5 MG
     Dates: start: 20091213

REACTIONS (6)
  - ARTHRALGIA [None]
  - BONE MARROW OEDEMA [None]
  - CONCOMITANT DISEASE PROGRESSION [None]
  - OSTEONECROSIS [None]
  - OSTEOPOROSIS [None]
  - RENAL OSTEODYSTROPHY [None]
